FAERS Safety Report 10183884 (Version 2)
Quarter: 2014Q2

REPORT INFORMATION
  Report Type: Report from Study
  Country: TW (occurrence: TW)
  Receive Date: 20140520
  Receipt Date: 20140520
  Transmission Date: 20141212
  Serious: Yes (Hospitalization)
  Sender: FDA-Public Use
  Company Number: TW-ABBVIE-14P-153-1226987-00

PATIENT
  Age: 35 Year
  Sex: Male
  Weight: 68 kg

DRUGS (2)
  1. HUMIRA [Suspect]
     Indication: ANKYLOSING SPONDYLITIS
     Route: 058
     Dates: start: 20111102, end: 20140409
  2. HUMIRA [Suspect]
     Dosage: RE-STARTED
     Dates: start: 20140430

REACTIONS (2)
  - Road traffic accident [Recovered/Resolved]
  - Clavicle fracture [Recovered/Resolved]
